FAERS Safety Report 7694521-6 (Version None)
Quarter: 2011Q3

REPORT INFORMATION
  Report Type: 
  Country: None (occurrence: None)
  Receive Date: 20110819
  Receipt Date: 20110812
  Transmission Date: 20111222
  Serious: Yes (Hospitalization, Other)
  Sender: FDA-Public Use
  Company Number: PHHY2011BR72730

PATIENT
  Sex: Male

DRUGS (4)
  1. MONOCORDIL [Concomitant]
     Indication: CARDIAC DISORDER
     Dosage: 3 DF, DAILY
     Route: 048
  2. CARDIZEM [Concomitant]
     Indication: CARDIAC DISORDER
     Dosage: 2 DF, DAILY
     Route: 048
  3. EXELON [Suspect]
     Indication: ISCHAEMIA
     Dosage: 18MG/10CM2, ONE PATCH DAILY
     Route: 062
  4. LASIX [Concomitant]
     Indication: PERIPHERAL VASCULAR DISORDER
     Dosage: 1 DF, QD
     Route: 048

REACTIONS (3)
  - CARDIAC DISORDER [None]
  - RENAL IMPAIRMENT [None]
  - MYOCARDIAL INFARCTION [None]
